FAERS Safety Report 4761816-5 (Version None)
Quarter: 2005Q3

REPORT INFORMATION
  Report Type: 
  Country: None (occurrence: None)
  Receive Date: 20050906
  Receipt Date: 20050616
  Transmission Date: 20060218
  Serious: Yes (Other)
  Sender: FDA-Public Use
  Company Number: 200515208US

PATIENT
  Sex: Male
  Weight: 34 kg

DRUGS (1)
  1. DDAVP [Suspect]
     Indication: ENURESIS
     Route: 048
     Dates: start: 20050113, end: 20050606

REACTIONS (6)
  - HALLUCINATION [None]
  - HYPERACUSIS [None]
  - SCREAMING [None]
  - SLEEP TERROR [None]
  - SLEEP WALKING [None]
  - VISUAL DISTURBANCE [None]
